FAERS Safety Report 11756250 (Version 3)
Quarter: 2016Q2

REPORT INFORMATION
  Report Type: Spontaneous
  Country: US (occurrence: US)
  Receive Date: 20151119
  Receipt Date: 20160504
  Transmission Date: 20160815
  Serious: No
  Sender: FDA-Public Use
  Company Number: US-CELGENEUS-USA-2015097048

PATIENT
  Age: 63 Year
  Sex: Female
  Weight: 45.85 kg

DRUGS (5)
  1. OLUX FOAM [Concomitant]
     Indication: PSORIASIS
     Route: 065
     Dates: start: 20150615
  2. DERMA-SMOOTH [Concomitant]
     Indication: PSORIASIS
     Route: 065
     Dates: start: 20150615
  3. NIZORAL [Concomitant]
     Active Substance: KETOCONAZOLE
     Indication: PSORIASIS
     Route: 065
     Dates: start: 201505
  4. OTEZLA [Suspect]
     Active Substance: APREMILAST
     Indication: PSORIASIS
     Route: 048
     Dates: start: 20150827
  5. OTEZLA [Suspect]
     Active Substance: APREMILAST
     Dosage: REDUCED
     Route: 048
     Dates: start: 20151020

REACTIONS (2)
  - Weight decreased [Recovering/Resolving]
  - Nausea [Recovering/Resolving]

NARRATIVE: CASE EVENT DATE: 20150827
